FAERS Safety Report 20535613 (Version 1)
Quarter: 2022Q1

REPORT INFORMATION
  Report Type: Spontaneous
  Country: UZ (occurrence: UZ)
  Receive Date: 20220302
  Receipt Date: 20220302
  Transmission Date: 20220423
  Serious: Yes (Other)
  Sender: FDA-Public Use
  Company Number: UZ-JNJFOC-20211050433

PATIENT
  Age: 32 Year
  Sex: Male
  Weight: 82 kg

DRUGS (14)
  1. SIRTURO [Suspect]
     Active Substance: BEDAQUILINE FUMARATE
     Indication: Tuberculosis
     Dosage: 200 X3 TIMES A?WEEK
     Route: 048
     Dates: start: 20210717, end: 20211016
  2. SIRTURO [Suspect]
     Active Substance: BEDAQUILINE FUMARATE
     Dosage: 200 X3 TIMES A?WEEK
     Route: 048
     Dates: start: 202107
  3. ISONIAZID [Suspect]
     Active Substance: ISONIAZID
     Indication: Tuberculosis
     Dosage: 600
     Route: 048
     Dates: start: 20210717, end: 20211016
  4. ISONIAZID [Suspect]
     Active Substance: ISONIAZID
     Dosage: 600
     Route: 048
     Dates: start: 202107
  5. PYRAZINAMIDE [Suspect]
     Active Substance: PYRAZINAMIDE
     Indication: Tuberculosis
     Dosage: 2000
     Route: 048
     Dates: start: 20210717, end: 20211016
  6. PYRAZINAMIDE [Suspect]
     Active Substance: PYRAZINAMIDE
     Dosage: 2000
     Route: 048
     Dates: start: 202107
  7. CLOFAZIMINE [Suspect]
     Active Substance: CLOFAZIMINE
     Indication: Tuberculosis
     Dosage: 100
     Route: 048
     Dates: start: 20210717, end: 20211016
  8. CLOFAZIMINE [Suspect]
     Active Substance: CLOFAZIMINE
     Dosage: 100
     Route: 048
     Dates: start: 202107
  9. PROTIONAMIDE [Suspect]
     Active Substance: PROTIONAMIDE
     Indication: Tuberculosis
     Dosage: 1000
     Route: 048
     Dates: start: 20210717, end: 20211016
  10. PROTIONAMIDE [Suspect]
     Active Substance: PROTIONAMIDE
     Dosage: 1000
     Route: 048
     Dates: start: 202107
  11. LEVOFLOXACIN [Suspect]
     Active Substance: LEVOFLOXACIN
     Indication: Tuberculosis
     Dosage: 1000
     Route: 048
     Dates: start: 20210717, end: 20211016
  12. LEVOFLOXACIN [Suspect]
     Active Substance: LEVOFLOXACIN
     Dosage: 1000
     Route: 048
     Dates: start: 202107
  13. ETHAMBUTOL [Suspect]
     Active Substance: ETHAMBUTOL HYDROCHLORIDE
     Indication: Tuberculosis
     Dosage: 1200
     Route: 048
     Dates: start: 20210717, end: 20211016
  14. ETHAMBUTOL [Suspect]
     Active Substance: ETHAMBUTOL HYDROCHLORIDE
     Dosage: 1200
     Route: 048
     Dates: start: 202107

REACTIONS (1)
  - Hepatitis toxic [Recovering/Resolving]

NARRATIVE: CASE EVENT DATE: 20211015
